FAERS Safety Report 21700580 (Version 2)
Quarter: 2022Q4

REPORT INFORMATION
  Report Type: Report from Study
  Country: AT (occurrence: AT)
  Receive Date: 20221208
  Receipt Date: 20221216
  Transmission Date: 20230112
  Serious: Yes (Hospitalization)
  Sender: FDA-Public Use
  Company Number: AT-ROCHE-3170820

PATIENT
  Age: 60 Year
  Sex: Female
  Weight: 86 kg

DRUGS (45)
  1. FULVESTRANT [Suspect]
     Active Substance: FULVESTRANT
     Indication: HER2 positive breast cancer
     Dosage: 500 MILLIGRAM, Q2W
     Route: 030
     Dates: start: 20220601
  2. TRASTUZUMAB [Suspect]
     Active Substance: TRASTUZUMAB
     Indication: HER2 positive breast cancer
     Dosage: MOST RECENT DOSE PRIOR TO EVENT: 28/OCT/2021
     Route: 042
     Dates: start: 20210618, end: 20210910
  3. LETROZOLE [Suspect]
     Active Substance: LETROZOLE
     Indication: HER2 positive breast cancer
     Dosage: 3 MILLIGRAM, QD
     Route: 048
     Dates: start: 20200210
  4. LETROZOLE [Suspect]
     Active Substance: LETROZOLE
     Dosage: MOST RECENT DOSE: 9/NOV/2020
     Route: 048
     Dates: start: 20200210, end: 20200907
  5. TAMOXIFEN CITRATE [Suspect]
     Active Substance: TAMOXIFEN CITRATE
     Indication: HER2 positive breast cancer
     Dosage: 20 MILLIGRAM, QD
     Route: 058
     Dates: start: 20210112, end: 20210304
  6. PACLITAXEL [Suspect]
     Active Substance: PACLITAXEL
     Indication: HER2 positive breast cancer
     Dosage: 151.26 MILLIGRAM, QW
     Route: 065
     Dates: start: 20191014, end: 20191014
  7. PACLITAXEL [Suspect]
     Active Substance: PACLITAXEL
     Dosage: 149.79 MILLIGRAM, QW
     Route: 065
     Dates: start: 20191021, end: 20191205
  8. ABEMACICLIB [Suspect]
     Active Substance: ABEMACICLIB
     Indication: HER2 positive breast cancer
     Dosage: 150 MILLIGRAM, BID
     Route: 048
     Dates: start: 20220601, end: 20220623
  9. CAPECITABINE [Suspect]
     Active Substance: CAPECITABINE
     Indication: HER2 positive breast cancer
     Dosage: MOST RECENT DOSE PRIOR TO THE EVENT: 20211230
     Route: 048
     Dates: start: 20210618, end: 20210924
  10. ADO-TRASTUZUMAB EMTANSINE [Suspect]
     Active Substance: ADO-TRASTUZUMAB EMTANSINE
     Indication: HER2 positive breast cancer
     Dosage: MOST RECENT DOSE 20/MAY/2021
     Route: 042
     Dates: start: 20210316
  11. PERTUZUMAB [Suspect]
     Active Substance: PERTUZUMAB
     Indication: HER2 positive breast cancer
     Dosage: MOST RECENT DOSE PRIOR TO EVENT: 3/JAN/2020
     Route: 042
     Dates: start: 20191014, end: 20191014
  12. TUCATINIB [Suspect]
     Active Substance: TUCATINIB
     Indication: HER2 positive breast cancer
     Dosage: MOST RECENT DOSE 30/DEC/2021
     Route: 048
     Dates: start: 20210618, end: 20211001
  13. TUCATINIB [Suspect]
     Active Substance: TUCATINIB
     Dosage: 300 MILLIGRAM, QD
     Route: 048
     Dates: start: 20210618
  14. PACLITAXEL [Suspect]
     Active Substance: PACLITAXEL
     Indication: HER2 positive breast cancer
     Dosage: MOST RECENT DOSE PRIOR TO AE 27/JAN/2020
     Route: 042
     Dates: start: 20200103
  15. LAFENE [Concomitant]
     Dosage: ONGOING = CHECKED
     Route: 065
     Dates: start: 20220115
  16. VITAMINS WITH MINERALS [Concomitant]
     Active Substance: MINERALS\VITAMINS
     Dosage: ONGOING = CHECKED
     Route: 065
  17. DILTIAZEM [Concomitant]
     Active Substance: DILTIAZEM
     Dosage: ONGOING = NOT CHECKED
     Route: 065
     Dates: start: 20220715
  18. PANTOPRAZOLE SODIUM [Concomitant]
     Active Substance: PANTOPRAZOLE SODIUM
     Dosage: ONGOING = CHECKED
     Route: 065
  19. Acemin [Concomitant]
     Dosage: ONGOING = NOT CHECKED
     Route: 065
     Dates: end: 20220715
  20. HYDROMORPHONE HYDROCHLORIDE [Concomitant]
     Active Substance: HYDROMORPHONE HYDROCHLORIDE
     Dosage: ONGOING = CHECKED
     Route: 065
     Dates: start: 20211230
  21. SIMVASTATIN [Concomitant]
     Active Substance: SIMVASTATIN
     Dosage: ONGOING = CHECKED
     Route: 065
  22. TRAZODONE HYDROCHLORIDE [Concomitant]
     Active Substance: TRAZODONE HYDROCHLORIDE
     Dosage: ONGOING = CHECKED
     Route: 065
  23. Paspertin [Concomitant]
     Dosage: ONGOING = CHECKED
     Route: 065
     Dates: start: 20191015
  24. METAMIZOLE [Concomitant]
     Active Substance: METAMIZOLE
     Indication: Chest pain
     Dosage: ONGOING = CHECKED
     Route: 065
     Dates: start: 20200724
  25. PASSEDAN [Concomitant]
     Dosage: ONGOING = CHECKED
     Route: 065
     Dates: start: 20191010
  26. BEROTEC [Concomitant]
     Active Substance: FENOTEROL HYDROBROMIDE
     Dosage: ONGOING = CHECKED
     Route: 065
  27. OLODATEROL HYDROCHLORIDE\TIOTROPIUM BROMIDE MONOHYDRATE [Concomitant]
     Active Substance: OLODATEROL HYDROCHLORIDE\TIOTROPIUM BROMIDE MONOHYDRATE
     Dosage: ONGOING = CHECKED
     Route: 065
  28. LOPERAMIDE HYDROCHLORIDE [Concomitant]
     Active Substance: LOPERAMIDE HYDROCHLORIDE
     Indication: Diarrhoea
     Dosage: ONGOING = CHECKED
     Route: 065
     Dates: start: 20191024
  29. ROFLUMILAST [Concomitant]
     Active Substance: ROFLUMILAST
     Dosage: ONGOING = CHECKED
     Route: 065
  30. VENLAFAXINE HYDROCHLORIDE [Concomitant]
     Active Substance: VENLAFAXINE HYDROCHLORIDE
     Dosage: ONGOING = CHECKED
     Route: 065
  31. BISOPROLOL FUMARATE [Concomitant]
     Active Substance: BISOPROLOL FUMARATE
     Dosage: ONGOING = CHECKED
     Route: 065
     Dates: start: 20220715
  32. BISOPROLOL FUMARATE [Concomitant]
     Active Substance: BISOPROLOL FUMARATE
     Dosage: ONGOING = NOT CHECKED
     Route: 065
     Dates: end: 20220715
  33. ALVESCO [Concomitant]
     Active Substance: CICLESONIDE
     Dosage: ONGOING = CHECKED
     Route: 065
  34. POLYETHYLENE GLYCOL 3350\POTASSIUM CHLORIDE\SODIUM BICARBONATE\SODIUM [Concomitant]
     Active Substance: POLYETHYLENE GLYCOL 3350\POTASSIUM CHLORIDE\SODIUM BICARBONATE\SODIUM CHLORIDE
     Dosage: ONGOING = CHECKED
     Route: 065
     Dates: start: 20191015
  35. BECLOMETHASONE DIPROPIONATE\FORMOTEROL FUMARATE\GLYCOPYRROLATE [Concomitant]
     Active Substance: BECLOMETHASONE DIPROPIONATE\FORMOTEROL FUMARATE\GLYCOPYRROLATE
     Dosage: UNK (ONGOING = CHECKED )
     Route: 065
  36. DEXAMETHASONE [Concomitant]
     Active Substance: DEXAMETHASONE
     Indication: Fatigue
     Dosage: UNK (ONGOING = NOT CHECKED )
     Route: 065
     Dates: start: 20220810, end: 20220818
  37. AMOXICILLIN\CLAVULANATE POTASSIUM [Concomitant]
     Active Substance: AMOXICILLIN\CLAVULANATE POTASSIUM
     Route: 065
  38. KYTRIL [Concomitant]
     Active Substance: GRANISETRON HYDROCHLORIDE
     Route: 065
  39. DIMETHINDENE [Concomitant]
     Active Substance: DIMETHINDENE
     Route: 065
  40. PREDNISOLONE [Concomitant]
     Active Substance: PREDNISOLONE
     Route: 065
  41. DEXAMETHASONE [Concomitant]
     Active Substance: DEXAMETHASONE
     Route: 065
  42. TAZOBACTAM [Concomitant]
     Active Substance: TAZOBACTAM
     Dosage: UNK
     Route: 065
  43. LEVOCETIRIZINE DIHYDROCHLORIDE [Concomitant]
     Active Substance: LEVOCETIRIZINE DIHYDROCHLORIDE
     Route: 065
  44. LEVOFLOXACIN [Concomitant]
     Active Substance: LEVOFLOXACIN
     Dosage: UNK
     Route: 065
  45. Ulcusan [Concomitant]
     Dosage: UNK
     Route: 065

REACTIONS (2)
  - Fatigue [Not Recovered/Not Resolved]
  - Hypotension [Not Recovered/Not Resolved]

NARRATIVE: CASE EVENT DATE: 20220715
